FAERS Safety Report 8582462-1 (Version None)
Quarter: 2012Q3

REPORT INFORMATION
  Report Type: 
  Country: None (occurrence: None)
  Receive Date: 20120809
  Receipt Date: 20120801
  Transmission Date: 20120928
  Serious: Yes (Other)
  Sender: FDA-Public Use
  Company Number: US-JNJFOC-20120802392

PATIENT
  Sex: Male
  Weight: 83.92 kg

DRUGS (3)
  1. REMICADE [Suspect]
     Dosage: 4TH INFUSION TREATMENT, TAKEN 3 WEEKS PRIOR TO THE TIME OF REPORT
     Route: 042
     Dates: start: 20120101
  2. UNKNOWN MEDICATION [Concomitant]
     Route: 065
  3. REMICADE [Suspect]
     Indication: COLITIS ULCERATIVE
     Route: 042
     Dates: start: 20120101

REACTIONS (1)
  - HAEMOCHROMATOSIS [None]
